FAERS Safety Report 8258181-8 (Version None)
Quarter: 2012Q2

REPORT INFORMATION
  Report Type: 
  Country: None (occurrence: None)
  Receive Date: 20120404
  Receipt Date: 20120329
  Transmission Date: 20120825
  Serious: Yes (Other)
  Sender: FDA-Public Use
  Company Number: PHHY2012BR018594

PATIENT
  Sex: Female
  Weight: 60 kg

DRUGS (6)
  1. PHENOBARBITAL TAB [Concomitant]
     Indication: EPILEPSY
     Dosage: 1 DF, QD
  2. TEGRETOL [Suspect]
     Dosage: 400 MG
  3. TEGRETOL [Suspect]
     Indication: EPILEPSY
     Dosage: 200 MG, QD
     Route: 048
     Dates: start: 19720101, end: 20050101
  4. TEGRETOL [Suspect]
     Dosage: 1.5 DF, UNK
     Route: 048
  5. TEGRETOL [Suspect]
     Dosage: 2 DF, UNK
     Route: 048
  6. TEGRETOL-XR [Suspect]
     Indication: EPILEPSY
     Dosage: 3 DF, QD
     Route: 048
     Dates: start: 20050101

REACTIONS (2)
  - FEAR OF DEATH [None]
  - CONVULSION [None]
